FAERS Safety Report 26100604 (Version 1)
Quarter: 2025Q4

REPORT INFORMATION
  Report Type: Spontaneous
  Country: US (occurrence: US)
  Receive Date: 20251128
  Receipt Date: 20251128
  Transmission Date: 20260118
  Serious: Yes (Other)
  Sender: SANOFI AVENTIS
  Company Number: US-SA-2025SA355093

PATIENT
  Age: 68 Year
  Sex: Male
  Weight: 102.27 kg

DRUGS (10)
  1. DUPIXENT [Suspect]
     Active Substance: DUPILUMAB
     Indication: Nasal polyps
     Dosage: 300 MG, QOW
     Route: 058
  2. PRILOSEC [Concomitant]
     Active Substance: OMEPRAZOLE MAGNESIUM
  3. LORATADINE [Concomitant]
     Active Substance: LORATADINE
  4. ARNUITY ELLIPTA [Concomitant]
     Active Substance: FLUTICASONE FUROATE
  5. CELEBREX [Concomitant]
     Active Substance: CELECOXIB
  6. DULOXETINE HYDROCHLORIDE [Concomitant]
     Active Substance: DULOXETINE HYDROCHLORIDE
  7. KEPPRA [Concomitant]
     Active Substance: LEVETIRACETAM
  8. ZOLPIDEM TARTRATE [Concomitant]
     Active Substance: ZOLPIDEM TARTRATE
  9. BUDESONIDE [Concomitant]
     Active Substance: BUDESONIDE
  10. GABAPENTIN [Concomitant]
     Active Substance: GABAPENTIN

REACTIONS (4)
  - Knee arthroplasty [Unknown]
  - Hypogeusia [Unknown]
  - Hyposmia [Unknown]
  - Asthma [Unknown]
